FAERS Safety Report 9758101 (Version 2)
Quarter: 2024Q3

REPORT INFORMATION
  Report Type: Spontaneous
  Country: US (occurrence: US)
  Receive Date: 20131216
  Receipt Date: 20240721
  Transmission Date: 20241016
  Serious: Yes (Other)
  Sender: BAYER
  Company Number: US-BAYER-2013-150901

PATIENT
  Age: 23 Year
  Sex: Female

DRUGS (1)
  1. MIRENA [Suspect]
     Active Substance: LEVONORGESTREL
     Indication: Contraception
     Dosage: 20?G/DAY
     Route: 015
     Dates: start: 2010, end: 20130118

REACTIONS (11)
  - Ovarian mass [None]
  - Device related infection [None]
  - Device dislocation [None]
  - Medical device pain [None]
  - Pain [None]
  - Dyspareunia [None]
  - Vulvovaginal pain [None]
  - Vulvovaginal discomfort [None]
  - Gait disturbance [None]
  - Uterine pain [None]
  - Ovarian cyst [None]

NARRATIVE: CASE EVENT DATE: 20120601
